FAERS Safety Report 20055020 (Version 1)
Quarter: 2021Q4

REPORT INFORMATION
  Report Type: Spontaneous
  Country: None (occurrence: TR)
  Receive Date: 20211110
  Receipt Date: 20211110
  Transmission Date: 20220303
  Serious: Yes (Hospitalization, Other)
  Sender: FDA-Public Use
  Company Number: TR-Avion Pharmaceuticals, LLC-2121705

PATIENT
  Age: 24 Year
  Sex: Female

DRUGS (4)
  1. GLOPERBA [Suspect]
     Active Substance: COLCHICINE
     Route: 065
  2. TACROLIMUS [Concomitant]
     Active Substance: TACROLIMUS
     Route: 065
  3. MYCOPHENOLATE MOFETIL [Concomitant]
     Active Substance: MYCOPHENOLATE MOFETIL
     Route: 065
  4. UNSPECIFIED INGREDIENT [Concomitant]
     Active Substance: UNSPECIFIED INGREDIENT
     Route: 065

REACTIONS (9)
  - Fatigue [Unknown]
  - Diarrhoea [Unknown]
  - Hyponatraemia [Unknown]
  - Pyrexia [Unknown]
  - Abdominal discomfort [Unknown]
  - Chest pain [Unknown]
  - Acute kidney injury [Unknown]
  - Gastrointestinal disorder [Unknown]
  - C-reactive protein increased [Unknown]
